FAERS Safety Report 8728687 (Version 3)
Quarter: 2012Q4

REPORT INFORMATION
  Report Type: 
  Country: NO (occurrence: NO)
  Receive Date: 20120817
  Receipt Date: 20120918
  Transmission Date: 20130627
  Serious: Yes (Hospitalization)
  Sender: FDA-Public Use
  Company Number: PHHY2012NO070433

PATIENT
  Age: 82 None
  Sex: Female

DRUGS (9)
  1. METFORMIN [Suspect]
     Dosage: 500 mg, daily
     Route: 048
  2. ESIDREX [Suspect]
     Dosage: 25 mg, UNK
     Dates: end: 20120723
  3. BURINEX [Suspect]
     Dosage: 1 mg, BID
     Route: 048
  4. SERETIDE [Concomitant]
     Indication: CHRONIC OBSTRUCTIVE PULMONARY DISEASE
     Route: 055
  5. MAREVAN [Concomitant]
     Route: 048
     Dates: end: 20120718
  6. VENTOLINE [Concomitant]
     Route: 055
  7. SPIRIVA [Concomitant]
  8. DIGIMERCK PICO [Concomitant]
     Dosage: every Monday, Tuesday, Thursday and Friday
     Route: 048
  9. SIMVASTATIN [Concomitant]
     Route: 048

REACTIONS (7)
  - Renal failure [Recovering/Resolving]
  - Nausea [Recovering/Resolving]
  - Vomiting [Recovering/Resolving]
  - Hypokalaemia [Recovering/Resolving]
  - Dehydration [Recovering/Resolving]
  - Constipation [Recovering/Resolving]
  - Decreased appetite [Recovering/Resolving]
